FAERS Safety Report 9725366 (Version 1)
Quarter: 2013Q4

REPORT INFORMATION
  Report Type: Spontaneous
  Country: JP (occurrence: JP)
  Receive Date: 20131203
  Receipt Date: 20131203
  Transmission Date: 20140711
  Serious: Yes (Hospitalization)
  Sender: FDA-Public Use
  Company Number: JP-MYLANLABS-2013S1026602

PATIENT
  Age: 84 Year
  Sex: Female
  Weight: 35 kg

DRUGS (12)
  1. CARPERITIDE [Suspect]
     Indication: NEPHROPROTECTIVE THERAPY
     Dosage: 0.02 MICROG/KG/MIN
     Route: 065
  2. MILRINONE [Interacting]
     Indication: PULMONARY HYPERTENSION
     Dosage: 0.25 MICROG/KG/MIN
     Route: 065
  3. REVATIO [Interacting]
     Indication: PULMONARY HYPERTENSION
     Dosage: 60 MG/DAY, WITH 20MG 1H BEFORE SURGERY
     Route: 048
  4. WARFARIN [Suspect]
     Indication: PULMONARY EMBOLISM
     Dosage: 1.5 MG/DAY
     Route: 065
  5. BERAPROST [Concomitant]
     Indication: PULMONARY EMBOLISM
     Dosage: 60 MICROG/DAY
     Route: 065
  6. HEPARIN [Concomitant]
     Indication: PULMONARY EMBOLISM
     Dosage: 10 000 UNITS/D
     Route: 065
  7. PROPOFOL [Concomitant]
     Indication: INDUCTION OF ANAESTHESIA
     Dosage: 20MG; THEN 4 MG/KG/H
     Route: 065
  8. PROPOFOL [Concomitant]
     Indication: MAINTENANCE OF ANAESTHESIA
     Dosage: 4 MG/KG/H
     Route: 065
  9. FENTANYL [Concomitant]
     Indication: INDUCTION OF ANAESTHESIA
     Dosage: 0.1MG; THEN INTERMITTENT 0.1MG
     Route: 065
  10. FENTANYL [Concomitant]
     Indication: MAINTENANCE OF ANAESTHESIA
     Dosage: INTERMITTENT 0.1MG
     Route: 065
  11. REMIFENTANIL [Concomitant]
     Indication: MAINTENANCE OF ANAESTHESIA
     Dosage: 0.1-0.4 MICROG/KG/MIN CONTINUOUS INFUSION
     Route: 050
  12. ROCURONIUM BROMIDE [Concomitant]
     Indication: MUSCLE RELAXANT THERAPY
     Route: 065

REACTIONS (3)
  - Tumour haemorrhage [Unknown]
  - Hypotension [Recovered/Resolved]
  - Drug interaction [Recovered/Resolved]
